FAERS Safety Report 5713267-4 (Version None)
Quarter: 2008Q2

REPORT INFORMATION
  Report Type: 
  Country: None (occurrence: None)
  Receive Date: 20080422
  Receipt Date: 20080411
  Transmission Date: 20081010
  Serious: Yes (Other)
  Sender: FDA-Public Use
  Company Number: US-PFIZER INC-2005144219

PATIENT
  Sex: Female
  Weight: 77 kg

DRUGS (14)
  1. ELLENCE [Suspect]
     Indication: BREAST CANCER
     Route: 042
  2. ELLENCE [Suspect]
     Dosage: DAILY DOSE:195MG
     Route: 042
  3. ELLENCE [Suspect]
     Dosage: DAILY DOSE:195MG
     Route: 042
  4. FLUOROURACIL [Concomitant]
     Indication: BREAST CANCER
     Dosage: DAILY DOSE:972MG
     Route: 042
  5. FLUOROURACIL [Concomitant]
     Dosage: DAILY DOSE:974MG
     Route: 042
  6. FLUOROURACIL [Concomitant]
     Dosage: DAILY DOSE:976MG
     Route: 042
  7. CYCLOPHOSPHAMIDE [Concomitant]
     Indication: BREAST CANCER
     Dosage: DAILY DOSE:972MG
     Route: 042
  8. CYCLOPHOSPHAMIDE [Concomitant]
     Dosage: DAILY DOSE:974MG
     Route: 042
  9. CYCLOPHOSPHAMIDE [Concomitant]
     Dosage: DAILY DOSE:976MG
     Route: 042
  10. COUMADIN [Concomitant]
  11. ALOXI [Concomitant]
     Route: 042
  12. BENADRYL [Concomitant]
     Route: 042
  13. DECADRON [Concomitant]
     Route: 042
  14. NEULASTA [Concomitant]
     Route: 058

REACTIONS (16)
  - BLISTER [None]
  - CATHETER RELATED COMPLICATION [None]
  - CATHETER SITE RELATED REACTION [None]
  - DEVICE DISLOCATION [None]
  - DIZZINESS [None]
  - DYSARTHRIA [None]
  - EXTRAVASATION [None]
  - HYPERTROPHIC SCAR [None]
  - MUSCLE INJURY [None]
  - NAUSEA [None]
  - SKELETAL INJURY [None]
  - SKIN INJURY [None]
  - SKIN ULCER [None]
  - SWELLING [None]
  - VASCULAR RUPTURE [None]
  - VISION BLURRED [None]
